FAERS Safety Report 5395746-5 (Version None)
Quarter: 2007Q3

REPORT INFORMATION
  Report Type: 
  Country: None (occurrence: None)
  Receive Date: 20070724
  Receipt Date: 20070712
  Transmission Date: 20080115
  Serious: Yes (Hospitalization, Disabling)
  Sender: FDA-Public Use
  Company Number: US-PFIZER INC-2007058379

PATIENT
  Sex: Female
  Weight: 69.9 kg

DRUGS (4)
  1. CELEBREX [Suspect]
     Indication: ARTHRITIS
  2. MORPHINE [Concomitant]
  3. TYLENOL (CAPLET) [Concomitant]
  4. VIOXX [Concomitant]

REACTIONS (2)
  - CARDIAC DISORDER [None]
  - PAIN [None]
